FAERS Safety Report 6646308-0 (Version None)
Quarter: 2010Q1

REPORT INFORMATION
  Report Type: 
  Country: None (occurrence: None)
  Receive Date: 20100323
  Receipt Date: 20100215
  Transmission Date: 20100710
  Serious: No
  Sender: FDA-Public Use
  Company Number: US-BAYER-201014762NA

PATIENT
  Age: 26 Year
  Sex: Female
  Weight: 88 kg

DRUGS (1)
  1. YAZ [Suspect]
     Indication: CONTRACEPTION
     Route: 048
     Dates: start: 20090201, end: 20100215

REACTIONS (2)
  - AMENORRHOEA [None]
  - WEIGHT INCREASED [None]
